FAERS Safety Report 6447134-8 (Version None)
Quarter: 2009Q4

REPORT INFORMATION
  Report Type: 
  Country: None (occurrence: None)
  Receive Date: 20091119
  Receipt Date: 20091110
  Transmission Date: 20100525
  Serious: Yes (Other)
  Sender: FDA-Public Use
  Company Number: IE-ABBOTT-09P-229-0601378-00

PATIENT
  Sex: Female

DRUGS (3)
  1. HUMIRA [Suspect]
     Indication: CROHN'S DISEASE
     Dosage: WEEK ONE
     Dates: start: 20090701, end: 20090701
  2. HUMIRA [Suspect]
     Dosage: WEEK TWO
  3. HUMIRA [Suspect]
     Dosage: WEEK FOUR AND THREAFTER
     Dates: end: 20091005

REACTIONS (1)
  - DEPRESSION [None]
